FAERS Safety Report 20099137 (Version 1)
Quarter: 2021Q4

REPORT INFORMATION
  Report Type: Other
  Country: None (occurrence: LT)
  Receive Date: 20211122
  Receipt Date: 20211122
  Transmission Date: 20220304
  Serious: Yes (Other)
  Sender: FDA-Public Use
  Company Number: LT-Jacobus Pharmaceutical Company, Inc.-2122160

PATIENT
  Age: 31 Year
  Sex: Female

DRUGS (5)
  1. PASER [Suspect]
     Active Substance: AMINOSALICYLIC ACID
     Indication: Pulmonary tuberculosis
  2. MOXIFLOXACIN [Concomitant]
     Active Substance: MOXIFLOXACIN
  3. CYCLOSERINE [Concomitant]
     Active Substance: CYCLOSERINE
  4. KANAMYCIN [Concomitant]
     Active Substance: KANAMYCIN A SULFATE
  5. PROTIONAMIDE [Concomitant]
     Active Substance: PROTIONAMIDE

REACTIONS (1)
  - Drug reaction with eosinophilia and systemic symptoms [Recovered/Resolved with Sequelae]
